FAERS Safety Report 5508543-4 (Version None)
Quarter: 2007Q4

REPORT INFORMATION
  Report Type: 
  Country: None (occurrence: None)
  Receive Date: 20071031
  Receipt Date: 20070709
  Transmission Date: 20080405
  Serious: No
  Sender: FDA-Public Use
  Company Number: 2007PV033117

PATIENT
  Age: 51 Year
  Sex: Female

DRUGS (4)
  1. SYMLIN [Suspect]
     Indication: TYPE 1 DIABETES MELLITUS
     Dosage: 18 MCG;HS;SC ; 15 MCG;HS;SC
     Route: 058
     Dates: start: 20070705, end: 20070707
  2. SYMLIN [Suspect]
     Indication: TYPE 1 DIABETES MELLITUS
     Dosage: 18 MCG;HS;SC ; 15 MCG;HS;SC
     Route: 058
     Dates: start: 20070708
  3. HUMALOG [Concomitant]
  4. PROTONICS [Concomitant]

REACTIONS (1)
  - BLOOD GLUCOSE INCREASED [None]
